FAERS Safety Report 9573485 (Version 6)
Quarter: 2014Q2

REPORT INFORMATION
  Report Type: Report from Study
  Country: US (occurrence: US)
  Receive Date: 20131001
  Receipt Date: 20140611
  Transmission Date: 20141212
  Serious: Yes (Other)
  Sender: FDA-Public Use
  Company Number: US-ROCHE-1282992

PATIENT
  Sex: Female
  Weight: 75 kg

DRUGS (17)
  1. LUCENTIS [Suspect]
     Indication: AGE-RELATED MACULAR DEGENERATION
     Route: 050
     Dates: start: 20110314
  2. LUCENTIS [Suspect]
     Indication: CYSTOID MACULAR OEDEMA
     Route: 050
     Dates: start: 20131008
  3. LUCENTIS [Suspect]
     Route: 050
     Dates: start: 2013, end: 20140114
  4. NEVANAC [Concomitant]
  5. PRED FORTE [Concomitant]
  6. METFORMIN [Concomitant]
  7. BENICAR HCT [Concomitant]
  8. ALPHAGAN [Concomitant]
  9. CONCOR [Concomitant]
  10. INSULIN [Concomitant]
  11. PURAN T4 [Concomitant]
  12. RIVOTRIL [Concomitant]
  13. ONBREZ [Concomitant]
  14. OMEPRAZOLE [Concomitant]
  15. ATROPINE [Concomitant]
  16. GLIFAGE [Concomitant]
  17. BRIMONIDINE TARTRATE [Concomitant]

REACTIONS (13)
  - Diabetes mellitus [Unknown]
  - Diabetic retinopathy [Unknown]
  - Hypertension [Unknown]
  - Central obesity [Unknown]
  - Visual acuity reduced [Recovering/Resolving]
  - Eye swelling [Not Recovered/Not Resolved]
  - Macular cyst [Recovering/Resolving]
  - Blindness [Recovering/Resolving]
  - Body height decreased [Unknown]
  - Eye pain [Recovering/Resolving]
  - Visual impairment [Unknown]
  - Vision blurred [Unknown]
  - Off label use [Unknown]
